FAERS Safety Report 12277244 (Version 2)
Quarter: 2016Q2

REPORT INFORMATION
  Report Type: Spontaneous
  Country: US (occurrence: US)
  Receive Date: 20160418
  Receipt Date: 20160419
  Transmission Date: 20160815
  Serious: No
  Sender: FDA-Public Use
  Company Number: US-TEVA-639975USA

PATIENT
  Age: 38 Year
  Sex: Female

DRUGS (1)
  1. ZECUITY [Suspect]
     Active Substance: SUMATRIPTAN SUCCINATE
     Indication: MIGRAINE
     Route: 062
     Dates: start: 20160225, end: 20160225

REACTIONS (4)
  - Incorrect drug administration duration [Unknown]
  - Application site erythema [Not Recovered/Not Resolved]
  - Application site swelling [Unknown]
  - Application site pain [Unknown]

NARRATIVE: CASE EVENT DATE: 20160225
